FAERS Safety Report 5662678-4 (Version None)
Quarter: 2008Q1

REPORT INFORMATION
  Report Type: 
  Country: None (occurrence: None)
  Receive Date: 20080313
  Receipt Date: 20080229
  Transmission Date: 20080703
  Serious: Yes (Death, Other)
  Sender: FDA-Public Use
  Company Number: DE-ROCHE-548278

PATIENT
  Sex: Male

DRUGS (1)
  1. LARIAM [Suspect]
     Route: 065

REACTIONS (2)
  - COMPLETED SUICIDE [None]
  - HOMICIDE [None]
